FAERS Safety Report 8129308-3 (Version None)
Quarter: 2012Q1

REPORT INFORMATION
  Report Type: 
  Country: None (occurrence: None)
  Receive Date: 20120210
  Receipt Date: 20120203
  Transmission Date: 20120608
  Serious: Yes (Death, Hospitalization)
  Sender: FDA-Public Use
  Company Number: PHHY2012ES009669

PATIENT
  Age: 78 Year
  Sex: Female

DRUGS (4)
  1. SULPIRIDE [Concomitant]
     Dosage: 50 MG/24 HOURS
  2. CARBAMAZEPINE [Interacting]
     Indication: RESTING TREMOR
     Dosage: 100 MG, DAY
  3. CILOSTAZOL [Interacting]
     Dosage: 100 MG, DAY
  4. OMEPRAZOLE [Suspect]
     Dosage: 20 MG, DAY

REACTIONS (14)
  - CARDIO-RESPIRATORY ARREST [None]
  - SEPTIC SHOCK [None]
  - STEVENS-JOHNSON SYNDROME [None]
  - NIKOLSKY'S SIGN [None]
  - STAPHYLOCOCCUS TEST POSITIVE [None]
  - ENTEROBACTER TEST POSITIVE [None]
  - PYREXIA [None]
  - LYMPHOPENIA [None]
  - SKIN EXFOLIATION [None]
  - DRUG INTERACTION [None]
  - TOXIC EPIDERMAL NECROLYSIS [None]
  - PRURITUS [None]
  - ACINETOBACTER TEST POSITIVE [None]
  - URTICARIA VESICULOSA [None]
